FAERS Safety Report 21613794 (Version 2)
Quarter: 2023Q2

REPORT INFORMATION
  Report Type: Spontaneous
  Country: CA (occurrence: CA)
  Receive Date: 20221118
  Receipt Date: 20230511
  Transmission Date: 20230721
  Serious: Yes (Hospitalization, Other)
  Sender: FDA-Public Use
  Company Number: CA-SAMSUNG BIOEPIS-SB-2022-29070

PATIENT
  Age: 60 Year
  Sex: Male
  Weight: 100 kg

DRUGS (3)
  1. INFLIXIMAB [Suspect]
     Active Substance: INFLIXIMAB
     Indication: Crohn^s disease
     Route: 042
  2. INFLIXIMAB [Suspect]
     Active Substance: INFLIXIMAB
     Route: 042
  3. METHOTREXATE [Concomitant]
     Active Substance: METHOTREXATE
     Indication: Product used for unknown indication
     Route: 058

REACTIONS (7)
  - Abdominal pain [Not Recovered/Not Resolved]
  - Pancreatitis [Not Recovered/Not Resolved]
  - Weight increased [Not Recovered/Not Resolved]
  - Intestinal resection [Not Recovered/Not Resolved]
  - Pancreatic abscess [Not Recovered/Not Resolved]
  - Intentional product use issue [Not Recovered/Not Resolved]
  - Off label use [Not Recovered/Not Resolved]
